FAERS Safety Report 7965913-2 (Version None)
Quarter: 2011Q4

REPORT INFORMATION
  Report Type: 
  Country: None (occurrence: None)
  Receive Date: 20111208
  Receipt Date: 20111128
  Transmission Date: 20120403
  Serious: Yes (Other)
  Sender: FDA-Public Use
  Company Number: FR-GLAXOSMITHKLINE-B0765311A

PATIENT
  Sex: Male

DRUGS (15)
  1. CALCIPARINE [Suspect]
     Indication: ARTERIAL DISORDER
     Dosage: 7500IU TWICE PER DAY
     Route: 058
     Dates: start: 20111014, end: 20111022
  2. CLONAZEPAM [Concomitant]
     Dosage: 5DROP PER DAY
  3. PYOSTACINE [Concomitant]
     Dosage: 500MG SIX TIMES PER DAY
     Dates: end: 20110915
  4. TRAMADOL HCL [Concomitant]
  5. VANCOMYCIN [Concomitant]
     Dates: start: 20111007, end: 20111026
  6. FENOFIBRATE [Concomitant]
  7. BACTRIM [Concomitant]
  8. AMOXICILLIN AND CLAVULANATE POTASSIUM [Suspect]
     Indication: INFECTION
     Dosage: 1INJ THREE TIMES PER DAY
     Route: 042
     Dates: start: 20111021, end: 20111023
  9. VALSARTAN [Concomitant]
  10. CIPROFLOXACIN HCL [Suspect]
     Indication: INFECTION
     Dosage: 500MG TWICE PER DAY
     Route: 042
     Dates: start: 20111021
  11. CRANBERRY [Concomitant]
  12. CIPROFLOXACIN [Concomitant]
     Dates: end: 20110927
  13. GENTAMICIN [Concomitant]
     Dates: start: 20111007, end: 20111013
  14. PREVISCAN [Concomitant]
     Dates: end: 20111006
  15. AUGMENTIN [Concomitant]
     Dates: start: 20111024, end: 20111025

REACTIONS (4)
  - HAEMATOMA [None]
  - THROMBOCYTOPENIA [None]
  - ANAEMIA [None]
  - HAEMATURIA [None]
